FAERS Safety Report 24202119 (Version 1)
Quarter: 2024Q3

REPORT INFORMATION
  Report Type: Spontaneous
  Country: US (occurrence: US)
  Receive Date: 20240812
  Receipt Date: 20240812
  Transmission Date: 20241016
  Serious: No
  Sender: ABBVIE
  Company Number: US-ABBVIE-5866545

PATIENT
  Age: 40 Year
  Sex: Male

DRUGS (1)
  1. SKYRIZI [Suspect]
     Active Substance: RISANKIZUMAB-RZAA
     Indication: Psoriasis
     Dosage: SKYRIZI 150MG PEN
     Route: 058
     Dates: start: 2022

REACTIONS (9)
  - Contusion [Unknown]
  - Poor quality product administered [Unknown]
  - Product preparation error [Unknown]
  - Arthralgia [Recovering/Resolving]
  - Myalgia [Unknown]
  - Arthritis [Unknown]
  - Weight bearing difficulty [Unknown]
  - Muscle spasms [Recovering/Resolving]
  - Hypoaesthesia [Unknown]

NARRATIVE: CASE EVENT DATE: 20240601
